FAERS Safety Report 21342053 (Version 1)
Quarter: 2022Q3

REPORT INFORMATION
  Report Type: Spontaneous
  Country: US (occurrence: None)
  Receive Date: 20220915
  Receipt Date: 20220915
  Transmission Date: 20221026
  Serious: Yes (Hospitalization)
  Sender: FDA-Public Use
  Company Number: None

PATIENT
  Age: 53 Year
  Sex: Female
  Weight: 63.7 kg

DRUGS (2)
  1. IBRANCE [Suspect]
     Active Substance: PALBOCICLIB
     Indication: Breast cancer metastatic
     Dosage: OTHER FREQUENCY : 21 DAY CYCLE;?
     Route: 048
  2. LETROZOLE [Concomitant]
     Active Substance: LETROZOLE
     Dates: start: 20220512

REACTIONS (6)
  - Hepatic steatosis [None]
  - Therapy interrupted [None]
  - Metastases to liver [None]
  - Liver injury [None]
  - Hepatic failure [None]
  - Drug hypersensitivity [None]

NARRATIVE: CASE EVENT DATE: 20220612
